FAERS Safety Report 16537674 (Version 1)
Quarter: 2019Q3

REPORT INFORMATION
  Report Type: Spontaneous
  Country: US (occurrence: US)
  Receive Date: 20190708
  Receipt Date: 20190708
  Transmission Date: 20191004
  Serious: No
  Sender: FDA-Public Use
  Company Number: US-LUPIN PHARMACEUTICALS INC.-2019-03131

PATIENT
  Sex: Female
  Weight: 71.66 kg

DRUGS (1)
  1. SOLOSEC [Suspect]
     Active Substance: SECNIDAZOLE
     Indication: BACTERIAL VAGINOSIS
     Dosage: 2 GRAM, SINGLE
     Route: 048
     Dates: start: 20190508, end: 20190508

REACTIONS (1)
  - Vulvovaginal burning sensation [Not Recovered/Not Resolved]
